FAERS Safety Report 20102956 (Version 1)
Quarter: 2021Q4

REPORT INFORMATION
  Report Type: Spontaneous
  Country: US (occurrence: None)
  Receive Date: 20211122
  Receipt Date: 20211122
  Transmission Date: 20220303
  Serious: No
  Sender: FDA-Public Use
  Company Number: None

PATIENT

DRUGS (2)
  1. KETAMINE HYDROCHLORIDE [Suspect]
     Active Substance: KETAMINE HYDROCHLORIDE
     Dosage: OTHER ROUTE : INJECTION;?
     Route: 050
  2. KETOROLAC [Suspect]
     Active Substance: KETOROLAC TROMETHAMINE
     Dosage: OTHER ROUTE : INJECTION;?
     Route: 050

REACTIONS (3)
  - Wrong product stored [None]
  - Wrong product administered [None]
  - Product selection error [None]
